FAERS Safety Report 8447607-2 (Version None)
Quarter: 2012Q2

REPORT INFORMATION
  Report Type: 
  Country: None (occurrence: None)
  Receive Date: 20120619
  Receipt Date: 20120613
  Transmission Date: 20120825
  Serious: Yes (Other)
  Sender: FDA-Public Use
  Company Number: BR-PFIZER INC-2012092564

PATIENT
  Age: 33 Year
  Sex: Female
  Weight: 77 kg

DRUGS (6)
  1. FLUOXETINE HYDROCHLORIDE [Suspect]
     Dosage: UNK
  2. GELMAX [Concomitant]
     Indication: GASTRIC DISORDER
  3. ZOLOFT [Suspect]
     Indication: OBSESSIVE-COMPULSIVE DISORDER
     Dosage: 25 MG, 1X/DAY
     Route: 048
     Dates: start: 20120301, end: 20120101
  4. ZOLOFT [Suspect]
     Dosage: 50 MG, 1X/DAY
     Route: 048
     Dates: start: 20120101
  5. PANTOPRAZOLE [Concomitant]
     Indication: GASTRIC DISORDER
     Dosage: 40 MG, 1X/DAY (ONE TABLET DAILY)
  6. DIVEDRAT [Concomitant]
     Indication: HIATUS HERNIA
     Dosage: 400 MG, 1X/DAY

REACTIONS (9)
  - DYSPHAGIA [None]
  - DYSPEPSIA [None]
  - THROAT TIGHTNESS [None]
  - DIZZINESS [None]
  - TREMOR [None]
  - NERVOUSNESS [None]
  - INSOMNIA [None]
  - NAUSEA [None]
  - VISION BLURRED [None]
